FAERS Safety Report 4380051-6 (Version None)
Quarter: 2004Q2

REPORT INFORMATION
  Report Type: 
  Country: None (occurrence: None)
  Receive Date: 20040614
  Receipt Date: 20040528
  Transmission Date: 20050107
  Serious: Yes (Hospitalization)
  Sender: FDA-Public Use
  Company Number: 200404353

PATIENT
  Age: 70 Year
  Sex: Female

DRUGS (1)
  1. BOTOX [Suspect]
     Indication: SALIVARY HYPERSECRETION

REACTIONS (6)
  - DYSPHAGIA [None]
  - DYSPHONIA [None]
  - INJECTION SITE EXTRAVASATION [None]
  - MEDICATION ERROR [None]
  - NEUROMYOPATHY [None]
  - REGURGITATION OF FOOD [None]
